FAERS Safety Report 18102380 (Version 1)
Quarter: 2020Q3

REPORT INFORMATION
  Report Type: Spontaneous
  Country: US (occurrence: US)
  Receive Date: 20200803
  Receipt Date: 20200803
  Transmission Date: 20201103
  Serious: Yes (Other)
  Sender: FDA-Public Use
  Company Number: US-STRIDES ARCOLAB LIMITED-2020SP007042

PATIENT
  Age: 36 Year
  Sex: Female

DRUGS (3)
  1. PREDNISOLONE. [Suspect]
     Active Substance: PREDNISOLONE
     Indication: LIVER TRANSPLANT
     Dosage: 5 MILLIGRAM, DAILY
     Route: 048
  2. TACROLIMUS. [Suspect]
     Active Substance: TACROLIMUS
     Indication: LIVER TRANSPLANT
     Dosage: 5 MILLIGRAM, BID
     Route: 048
  3. MYCOPHENOLATE MOFETIL. [Suspect]
     Active Substance: MYCOPHENOLATE MOFETIL
     Indication: LIVER TRANSPLANT
     Dosage: 500 MILLIGRAM, BID
     Route: 048

REACTIONS (3)
  - Hepatitis E [Recovered/Resolved]
  - Liver transplant rejection [Unknown]
  - Hepatic cirrhosis [Unknown]
